FAERS Safety Report 7815795-4 (Version None)
Quarter: 2011Q4

REPORT INFORMATION
  Report Type: 
  Country: None (occurrence: None)
  Receive Date: 20111014
  Receipt Date: 20111005
  Transmission Date: 20120403
  Serious: Yes (Other)
  Sender: FDA-Public Use
  Company Number: US-AMGEN-USASP2011051656

PATIENT
  Sex: Female

DRUGS (3)
  1. CORTICOSTEROIDS [Concomitant]
     Indication: THROMBOCYTOPENIA
     Dosage: 200 UNK, UNK
  2. CORTICOSTEROIDS [Concomitant]
     Indication: MYELODYSPLASTIC SYNDROME
  3. NPLATE [Suspect]
     Indication: THROMBOCYTOPENIA
     Dosage: 200 MUG, UNK
     Dates: start: 20110531, end: 20110531

REACTIONS (3)
  - MYELODYSPLASTIC SYNDROME [None]
  - HAEMATOLOGICAL MALIGNANCY [None]
  - DRUG INEFFECTIVE [None]
